FAERS Safety Report 21959537 (Version 1)
Quarter: 2023Q1

REPORT INFORMATION
  Report Type: Spontaneous
  Country: US (occurrence: None)
  Receive Date: 20230203
  Receipt Date: 20230203
  Transmission Date: 20230418
  Serious: Yes (Other)
  Sender: FDA-Public Use
  Company Number: None

PATIENT
  Age: 52 Year
  Sex: Male

DRUGS (16)
  1. OPSUMIT [Suspect]
     Active Substance: MACITENTAN
     Indication: Heritable pulmonary arterial hypertension
     Dosage: FREQUENCY : DAILY;?
     Route: 048
     Dates: start: 20151119
  2. OPSUMIT [Suspect]
     Active Substance: MACITENTAN
     Indication: Pulmonary arterial hypertension
  3. SILDENAFIL [Concomitant]
     Active Substance: SILDENAFIL
  4. BUMETANIDE [Concomitant]
     Active Substance: BUMETANIDE
  5. SPIRONOLACTONE [Concomitant]
     Active Substance: SPIRONOLACTONE
  6. CHLORTHALIDONE [Concomitant]
     Active Substance: CHLORTHALIDONE
  7. POTASSIUM CHLORIDE [Concomitant]
     Active Substance: POTASSIUM CHLORIDE
  8. PREGABALIN [Concomitant]
     Active Substance: PREGABALIN
  9. GUANIDINE [Concomitant]
     Active Substance: GUANIDINE
  10. VITAMIN D3 [Concomitant]
     Active Substance: CHOLECALCIFEROL
  11. TRAZODONE [Concomitant]
     Active Substance: TRAZODONE HYDROCHLORIDE
  12. BENZONATATE [Concomitant]
     Active Substance: BENZONATATE
  13. 2,3,7,8-TETRACHLORODIBENZO-P-DIOXIN [Concomitant]
     Active Substance: 2,3,7,8-TETRACHLORODIBENZO-P-DIOXIN
  14. ATORVASTATIN [Concomitant]
     Active Substance: ATORVASTATIN
  15. APIXABAN [Concomitant]
     Active Substance: APIXABAN
  16. OMEPRAZOLE [Concomitant]
     Active Substance: OMEPRAZOLE

REACTIONS (2)
  - Complication associated with device [None]
  - Suture rupture [None]

NARRATIVE: CASE EVENT DATE: 20230128
